FAERS Safety Report 8384830-X (Version None)
Quarter: 2012Q2

REPORT INFORMATION
  Report Type: 
  Country: None (occurrence: None)
  Receive Date: 20120524
  Receipt Date: 20120511
  Transmission Date: 20120825
  Serious: No
  Sender: FDA-Public Use
  Company Number: US-ASTRAZENECA-2012SE30537

PATIENT
  Age: 13 Year
  Sex: Male
  Weight: 79.4 kg

DRUGS (12)
  1. SEROQUEL [Suspect]
     Indication: ATTENTION DEFICIT/HYPERACTIVITY DISORDER
     Dosage: 2 TABLETS IN THE MORNING, 1 TABLET AT 1PM AND 3 TABLETS AT 6PM
     Route: 048
  2. SEROQUEL [Suspect]
     Dosage: GENERIC
     Route: 048
     Dates: start: 20120401
  3. LORATADINE [Concomitant]
  4. SEROQUEL [Suspect]
     Indication: ABNORMAL BEHAVIOUR
     Dosage: 2 TABLETS IN THE MORNING, 1 TABLET AT 1PM AND 3 TABLETS AT 6PM
     Route: 048
  5. ABILIFY [Concomitant]
  6. SEROQUEL [Suspect]
     Dosage: GENERIC
     Route: 048
     Dates: start: 20120401
  7. SEROQUEL [Suspect]
     Dosage: GENERIC
     Route: 048
     Dates: start: 20120401
  8. SEROQUEL [Suspect]
     Dosage: GENERIC
     Route: 048
     Dates: start: 20120401
  9. ATARAX [Concomitant]
  10. SEROQUEL [Suspect]
     Indication: BIPOLAR DISORDER
     Dosage: 2 TABLETS IN THE MORNING, 1 TABLET AT 1PM AND 3 TABLETS AT 6PM
     Route: 048
  11. SEROQUEL [Suspect]
     Indication: OBSESSIVE-COMPULSIVE DISORDER
     Dosage: 2 TABLETS IN THE MORNING, 1 TABLET AT 1PM AND 3 TABLETS AT 6PM
     Route: 048
  12. RITALIN [Concomitant]

REACTIONS (2)
  - ABNORMAL BEHAVIOUR [None]
  - DRUG INEFFECTIVE [None]
